FAERS Safety Report 15306782 (Version 2)
Quarter: 2018Q3

REPORT INFORMATION
  Report Type: Report from Study
  Country: BR (occurrence: BR)
  Receive Date: 20180822
  Receipt Date: 20180903
  Transmission Date: 20181010
  Serious: Yes (Other)
  Sender: FDA-Public Use
  Company Number: PHHY2018BR075612

PATIENT
  Age: 75 Year
  Sex: Male
  Weight: 65 kg

DRUGS (6)
  1. TRILEPTAL [Suspect]
     Active Substance: OXCARBAZEPINE
     Indication: DIZZINESS
  2. GINKGO BILOBA [Concomitant]
     Active Substance: GINKGO
     Indication: CERUMEN IMPACTION
  3. CERUMIN [Concomitant]
     Active Substance: OXYQUINOLINE\TROLAMINE
     Indication: HYPOACUSIS
     Dosage: UNK
     Route: 065
  4. CERUMIN [Concomitant]
     Active Substance: OXYQUINOLINE\TROLAMINE
     Indication: CERUMEN IMPACTION
  5. TRILEPTAL [Suspect]
     Active Substance: OXCARBAZEPINE
     Indication: SEIZURE
     Dosage: 0.5 DF, QHS (HALF TABLET AT NIGHT) (APPROXIMATELY 2 YEARS AGO)
     Route: 048
  6. GINKGO BILOBA [Concomitant]
     Active Substance: GINKGO
     Indication: HYPOACUSIS
     Dosage: UNK
     Route: 065

REACTIONS (7)
  - Epilepsy [Recovered/Resolved]
  - Nervousness [Recovered/Resolved]
  - Seizure [Recovered/Resolved]
  - Syncope [Recovered/Resolved]
  - Fall [Recovered/Resolved]
  - Condition aggravated [Recovered/Resolved]
  - Cerebrovascular disorder [Recovered/Resolved]

NARRATIVE: CASE EVENT DATE: 2017
